FAERS Safety Report 5376393-8 (Version None)
Quarter: 2007Q2

REPORT INFORMATION
  Report Type: 
  Country: None (occurrence: None)
  Receive Date: 20070627
  Receipt Date: 20070627
  Transmission Date: 20071010
  Serious: Yes (Hospitalization)
  Sender: FDA-Public Use
  Company Number: None

PATIENT
  Sex: Female
  Weight: 95.2 kg

DRUGS (1)
  1. CYTARABINE [Suspect]
     Dosage: 51.2 G

REACTIONS (14)
  - ACIDOSIS [None]
  - APNOEA [None]
  - BACTERIAL SEPSIS [None]
  - CARDIAC ARREST [None]
  - CELLULITIS [None]
  - DISEASE PROGRESSION [None]
  - HYPOTENSION [None]
  - PAIN [None]
  - PANCYTOPENIA [None]
  - RENAL FAILURE ACUTE [None]
  - SEPTIC SHOCK [None]
  - SKIN DISCOLOURATION [None]
  - TACHYCARDIA [None]
  - TACHYPNOEA [None]
